FAERS Safety Report 7190351-2 (Version None)
Quarter: 2010Q4

REPORT INFORMATION
  Report Type: 
  Country: None (occurrence: None)
  Receive Date: 20101221
  Receipt Date: 20101221
  Transmission Date: 20110411
  Serious: Yes (Life-Threatening, Hospitalization)
  Sender: FDA-Public Use
  Company Number: None

PATIENT
  Age: 85 Year
  Sex: Female
  Weight: 58.9676 kg

DRUGS (1)
  1. LEVAQUIN [Suspect]
     Indication: PNEUMONIA
     Dosage: 1 DAILY  PRESCRIPTION FOR 7 TOOK ONLY 2 DAYS
     Dates: start: 20101115, end: 20101116

REACTIONS (2)
  - ANGIOEDEMA [None]
  - DYSPNOEA [None]
